FAERS Safety Report 9112256 (Version 1)
Quarter: 2013Q1

REPORT INFORMATION
  Report Type: Spontaneous
  Country: US (occurrence: US)
  Receive Date: 20130219
  Receipt Date: 20130219
  Transmission Date: 20140127
  Serious: Yes (Hospitalization)
  Sender: FDA-Public Use
  Company Number: US-BRISTOL-MYERS SQUIBB COMPANY-16700734

PATIENT
  Age: 42 Year
  Sex: Female

DRUGS (2)
  1. ORENCIA FOR INJ 250 MG/VIAL [Suspect]
     Dosage: INITIALLY WEEK 6 THEN AFTER EVERY 4 WEEK. RESTARTED ON 18MAY12 375MG
     Route: 042
  2. PREDNISONE [Concomitant]
     Dosage: TAB

REACTIONS (2)
  - Dyspnoea [Unknown]
  - Influenza like illness [Unknown]
